FAERS Safety Report 8959024 (Version 2)
Quarter: 2012Q4

REPORT INFORMATION
  Report Type: 
  Country: DE (occurrence: DE)
  Receive Date: 20121212
  Receipt Date: 20121226
  Transmission Date: 20130627
  Serious: Yes (Other)
  Sender: FDA-Public Use
  Company Number: DE-ASTRAZENECA-2012SE91168

PATIENT
  Age: 27322 Day
  Sex: Male
  Weight: 94 kg

DRUGS (10)
  1. BRILIQUE [Suspect]
     Indication: ACUTE CORONARY SYNDROME
     Route: 048
     Dates: start: 20121116
  2. ASS 100 [Concomitant]
     Indication: ACUTE CORONARY SYNDROME
     Route: 048
  3. DIOVAN 160 [Concomitant]
     Indication: HYPERTENSION
     Route: 048
  4. BELOC-ZOK MITE [Concomitant]
     Indication: HYPERTENSION
     Route: 048
  5. PANTOZOL [Concomitant]
     Indication: GASTRITIS
     Route: 048
  6. SIMVA 20 [Concomitant]
     Indication: HYPERLIPIDAEMIA
     Route: 048
     Dates: end: 20121119
  7. ALLO 100 [Concomitant]
     Indication: HYPERURICAEMIA
     Route: 048
     Dates: start: 20121117, end: 20121122
  8. NEURONTIN 100 [Concomitant]
     Indication: SPINAL PAIN
     Route: 048
     Dates: start: 20121117, end: 20121122
  9. VALORON [Concomitant]
     Indication: SPINAL PAIN
     Route: 048
     Dates: start: 20121117, end: 20121120
  10. NOVALGIN [Concomitant]
     Indication: SPINAL PAIN
     Route: 048
     Dates: start: 20121116, end: 20121122

REACTIONS (1)
  - Rhabdomyolysis [Recovered/Resolved]
